FAERS Safety Report 5170691-9 (Version None)
Quarter: 2006Q4

REPORT INFORMATION
  Report Type: 
  Country: None (occurrence: None)
  Receive Date: 20060919
  Receipt Date: 20060626
  Transmission Date: 20070319
  Serious: No
  Sender: FDA-Public Use
  Company Number: 2006US001449

PATIENT
  Age: 73 Year
  Sex: Female

DRUGS (8)
  1. VESICARE [Suspect]
     Indication: INCONTINENCE
     Dosage: ORAL
     Route: 048
  2. PLAVIX [Concomitant]
  3. GABAPENTIN [Concomitant]
  4. METFORMIN HCL [Concomitant]
  5. ZANTAC [Concomitant]
  6. CLONAZEPAM [Concomitant]
  7. WELLBUTRIN [Concomitant]
  8. LOVASTATIN [Concomitant]

REACTIONS (1)
  - NAUSEA [None]
